FAERS Safety Report 17458402 (Version 2)
Quarter: 2020Q1

REPORT INFORMATION
  Report Type: Spontaneous
  Country: GB (occurrence: GB)
  Receive Date: 20200225
  Receipt Date: 20200319
  Transmission Date: 20200409
  Serious: Yes (Congenital Anomaly, Other)
  Sender: FDA-Public Use
  Company Number: GB-MYLANLABS-2020M1019919

PATIENT
  Age: 2 Year
  Sex: Female

DRUGS (1)
  1. ISOTRETINOIN. [Suspect]
     Active Substance: ISOTRETINOIN
     Indication: PRODUCT USED FOR UNKNOWN INDICATION
     Dosage: UNK
     Route: 064

REACTIONS (7)
  - Choanal atresia [Unknown]
  - Craniofacial deformity [Unknown]
  - Atrial septal defect [Unknown]
  - Cleft lip [Unknown]
  - Cleft palate [Unknown]
  - Congenital tongue anomaly [Unknown]
  - Foetal exposure during pregnancy [Recovered/Resolved]
